FAERS Safety Report 8089355-7 (Version None)
Quarter: 2012Q1

REPORT INFORMATION
  Report Type: 
  Country: None (occurrence: None)
  Receive Date: 20120128
  Receipt Date: 20110701
  Transmission Date: 20120608
  Serious: No
  Sender: FDA-Public Use
  Company Number: US-ABBOTT-11P-163-0835758-00

PATIENT
  Age: 20 Year
  Sex: Female

DRUGS (7)
  1. VITAMIN E [Concomitant]
     Indication: SUPPLEMENTATION THERAPY
  2. FISH OIL [Concomitant]
     Indication: SUPPLEMENTATION THERAPY
  3. VITAMIN D [Concomitant]
     Indication: SUPPLEMENTATION THERAPY
  4. ASCORBIC ACID [Concomitant]
     Indication: SUPPLEMENTATION THERAPY
  5. HUMIRA [Suspect]
     Indication: PSORIASIS
     Dates: start: 20110501
  6. LOESTRIN 1.5/30 [Concomitant]
     Indication: CONTRACEPTION
     Dosage: 21
  7. CRANBERRY [Concomitant]
     Indication: SUPPLEMENTATION THERAPY

REACTIONS (3)
  - INJECTION SITE PRURITUS [None]
  - INJECTION SITE SWELLING [None]
  - INJECTION SITE ERYTHEMA [None]
